FAERS Safety Report 4943956-0 (Version None)
Quarter: 2006Q1

REPORT INFORMATION
  Report Type: 
  Country: None (occurrence: None)
  Receive Date: 20060313
  Receipt Date: 20060313
  Transmission Date: 20060701
  Serious: Yes (Life-Threatening, Hospitalization)
  Sender: FDA-Public Use
  Company Number: None

PATIENT
  Sex: Female
  Weight: 55 kg

DRUGS (12)
  1. METHADONE 10 MG [Suspect]
     Indication: BACK PAIN
     Dosage: 5 MG Q8H PO [SEVERAL MONTHS]
     Route: 048
  2. CLONAZEPAM [Suspect]
     Indication: ANXIETY
     Dosage: 0.5 MG TID PO [SEVERAL MONTHS]
     Route: 048
  3. DIAZEPAM [Concomitant]
  4. VICODIN [Concomitant]
  5. DOCUSATE [Concomitant]
  6. ESTRADIOL [Concomitant]
  7. HYDROCHLOROTHIAZIDE [Concomitant]
  8. PRILOSEC [Concomitant]
  9. PAXIL [Concomitant]
  10. PRAZOSIN [Concomitant]
  11. SENNA [Concomitant]
  12. ALBUTEROL [Concomitant]

REACTIONS (8)
  - CARDIAC ENZYMES INCREASED [None]
  - DEPRESSED LEVEL OF CONSCIOUSNESS [None]
  - JAUNDICE [None]
  - METABOLIC ENCEPHALOPATHY [None]
  - OVERDOSE [None]
  - PNEUMONIA ASPIRATION [None]
  - RENAL FAILURE ACUTE [None]
  - RHABDOMYOLYSIS [None]
